FAERS Safety Report 8077650-7 (Version None)
Quarter: 2012Q1

REPORT INFORMATION
  Report Type: 
  Country: None (occurrence: None)
  Receive Date: 20120127
  Receipt Date: 20120120
  Transmission Date: 20120608
  Serious: Yes (Hospitalization)
  Sender: FDA-Public Use
  Company Number: US-ABBOTT-12P-163-0897578-00

PATIENT
  Sex: Female
  Weight: 62.652 kg

DRUGS (1)
  1. HUMIRA [Suspect]
     Indication: CROHN'S DISEASE
     Dates: start: 20111103

REACTIONS (4)
  - SPINAL OSTEOARTHRITIS [None]
  - MIGRAINE [None]
  - FATIGUE [None]
  - CONVULSION [None]
